FAERS Safety Report 11999371 (Version 1)
Quarter: 2016Q1

REPORT INFORMATION
  Report Type: Spontaneous
  Country: CN (occurrence: CN)
  Receive Date: 20160204
  Receipt Date: 20160204
  Transmission Date: 20160526
  Serious: Yes (Other)
  Sender: FDA-Public Use
  Company Number: CN-009507513-1602CHN000656

PATIENT
  Age: 78 Year
  Sex: Male

DRUGS (1)
  1. PROSCAR [Suspect]
     Active Substance: FINASTERIDE
     Indication: BENIGN PROSTATIC HYPERPLASIA
     Dosage: 1 TABLET, QD
     Route: 048
     Dates: start: 2004, end: 20160201

REACTIONS (3)
  - Mastitis [Unknown]
  - Breast mass [Unknown]
  - Breast neoplasm [Unknown]

NARRATIVE: CASE EVENT DATE: 201512
